FAERS Safety Report 6264867-7 (Version None)
Quarter: 2009Q3

REPORT INFORMATION
  Report Type: 
  Country: None (occurrence: None)
  Receive Date: 20090713
  Receipt Date: 20070918
  Transmission Date: 20100115
  Serious: Yes (Other)
  Sender: FDA-Public Use
  Company Number: US-ASTRAZENECA-2007UW09444

PATIENT
  Age: 380 Month
  Sex: Female
  Weight: 98.9 kg

DRUGS (31)
  1. SEROQUEL [Suspect]
     Indication: BIPOLAR DISORDER
     Dosage: 25 MG - 600 MG
     Route: 048
     Dates: start: 20030924
  2. SEROQUEL [Suspect]
     Dosage: 200MG, 600MG
     Route: 048
     Dates: start: 20040101
  3. ABILIFY [Concomitant]
     Route: 048
  4. PEPCID [Concomitant]
  5. VICODIN [Concomitant]
  6. MIRALAX [Concomitant]
  7. BENTYL [Concomitant]
  8. AMBIEN [Concomitant]
  9. ATARAX [Concomitant]
  10. METHADONE HCL [Concomitant]
  11. VISICOL [Concomitant]
  12. SINGULAIR [Concomitant]
  13. MAXALT [Concomitant]
  14. NEXIUM [Concomitant]
  15. TOPAMAX [Concomitant]
  16. PHENERGAN [Concomitant]
  17. ALBUTEROL [Concomitant]
  18. GEODON [Concomitant]
  19. LOPID [Concomitant]
  20. GLUCOPHAGE [Concomitant]
  21. SKELAXIN [Concomitant]
  22. SYNTHROID [Concomitant]
  23. LIPITOR [Concomitant]
  24. WELLBUTRIN [Concomitant]
  25. CYMBALTA [Concomitant]
  26. CIPRO [Concomitant]
  27. MACRODANTIN [Concomitant]
  28. FLEXERIL [Concomitant]
  29. XANAX [Concomitant]
  30. PHENAZOPYRIDINE HCL TAB [Concomitant]
  31. FEXOFENADINE [Concomitant]

REACTIONS (2)
  - NEUROPATHY PERIPHERAL [None]
  - TYPE 2 DIABETES MELLITUS [None]
